FAERS Safety Report 9099693 (Version 3)
Quarter: 2013Q2

REPORT INFORMATION
  Report Type: Report from Study
  Country: IT (occurrence: IT)
  Receive Date: 20130214
  Receipt Date: 20130502
  Transmission Date: 20140414
  Serious: Yes (Hospitalization, Other)
  Sender: FDA-Public Use
  Company Number: IT-ROCHE-1055480

PATIENT
  Age: 68 Year
  Sex: Female
  Weight: 61 kg

DRUGS (2)
  1. VEMURAFENIB [Suspect]
     Indication: MALIGNANT MELANOMA
     Dosage: DATE FO LAST DOSE PRIOR TO SAE 29 JAN 2012
     Route: 048
     Dates: start: 20111128
  2. VEMURAFENIB [Suspect]
     Dosage: DATE OF LAST DOSE PRIOR TO SAE 04-FEB-2013
     Route: 048
     Dates: start: 20120130, end: 20130204

REACTIONS (3)
  - Pericardial effusion [Not Recovered/Not Resolved]
  - Keratoacanthoma [Recovered/Resolved]
  - Viral infection [Not Recovered/Not Resolved]
